FAERS Safety Report 5907256-4 (Version None)
Quarter: 2008Q4

REPORT INFORMATION
  Report Type: 
  Country: None (occurrence: None)
  Receive Date: 20081003
  Receipt Date: 20080925
  Transmission Date: 20090506
  Serious: Yes (Hospitalization)
  Sender: FDA-Public Use
  Company Number: PHHY2008AU22582

PATIENT
  Sex: Male

DRUGS (3)
  1. CLOZARIL [Suspect]
     Dosage: 87.5MGS  DAILY
     Dates: start: 20080829
  2. CLOZARIL [Suspect]
     Dosage: 125MG DAILY
  3. CLOZARIL [Suspect]
     Dosage: 250MG DAILY
     Dates: end: 20080912

REACTIONS (5)
  - MONOCYTOSIS [None]
  - NEUTROPHILIA [None]
  - PHARYNGITIS [None]
  - PYREXIA [None]
  - TROPONIN INCREASED [None]
